FAERS Safety Report 7765881-2 (Version None)
Quarter: 2011Q3

REPORT INFORMATION
  Report Type: 
  Country: None (occurrence: None)
  Receive Date: 20110921
  Receipt Date: 20110908
  Transmission Date: 20111222
  Serious: Yes (Other)
  Sender: FDA-Public Use
  Company Number: US-ELI_LILLY_AND_COMPANY-US201109003787

PATIENT
  Age: 42 Year
  Sex: Female
  Weight: 136 kg

DRUGS (3)
  1. GEODON [Concomitant]
  2. ZYPREXA [Suspect]
     Dosage: 30 MG, QD
  3. ZYPREXA [Suspect]
     Indication: BIPOLAR DISORDER
     Dosage: 40 MG, QD

REACTIONS (2)
  - WEIGHT INCREASED [None]
  - OVERDOSE [None]
